FAERS Safety Report 7079081-5 (Version None)
Quarter: 2010Q4

REPORT INFORMATION
  Report Type: 
  Country: None (occurrence: None)
  Receive Date: 20101102
  Receipt Date: 20101025
  Transmission Date: 20110411
  Serious: Yes (Death, Life-Threatening)
  Sender: FDA-Public Use
  Company Number: FR-ROCHE-736819

PATIENT
  Sex: Male

DRUGS (3)
  1. XELODA [Suspect]
     Route: 042
     Dates: start: 20070501
  2. EPIRUBICIN [Suspect]
     Dosage: DOSE CYCLIC
     Route: 042
     Dates: start: 20070501, end: 20071030
  3. CISPLATIN [Suspect]
     Route: 042
     Dates: start: 20070501

REACTIONS (2)
  - HAEMOLYTIC ANAEMIA [None]
  - THROMBOCYTOPENIA [None]
